FAERS Safety Report 4526521-9 (Version None)
Quarter: 2004Q4

REPORT INFORMATION
  Report Type: 
  Country: None (occurrence: None)
  Receive Date: 20041214
  Receipt Date: 20041206
  Transmission Date: 20050328
  Serious: Yes (Other)
  Sender: FDA-Public Use
  Company Number: AT-BRISTOL-MYERS SQUIBB COMPANY-12786224

PATIENT
  Age: 28 Year
  Sex: Male

DRUGS (2)
  1. ETOPOSIDE [Suspect]
     Indication: GERM CELL CANCER
     Route: 042
  2. BLEOMYCIN SULFATE [Suspect]
     Indication: GERM CELL CANCER
     Dosage: 30 MG BOLUS, 90 MG CONTINUOUS INFUSION DAYS 1 TO 3
     Route: 042

REACTIONS (1)
  - MYOCARDIAL INFARCTION [None]
